FAERS Safety Report 8021598-0 (Version None)
Quarter: 2012Q1

REPORT INFORMATION
  Report Type: 
  Country: None (occurrence: None)
  Receive Date: 20120104
  Receipt Date: 20120104
  Transmission Date: 20120608
  Serious: No
  Sender: FDA-Public Use
  Company Number: None

PATIENT
  Sex: Female

DRUGS (1)
  1. CYANOCOBALAMIN [Suspect]
     Dosage: 1 ML
     Route: 030
     Dates: start: 20111230, end: 20111230

REACTIONS (3)
  - THROAT TIGHTNESS [None]
  - HYPERSENSITIVITY [None]
  - DYSPHAGIA [None]
